FAERS Safety Report 18690399 (Version 1)
Quarter: 2021Q1

REPORT INFORMATION
  Report Type: Spontaneous
  Country: IN (occurrence: IN)
  Receive Date: 20210101
  Receipt Date: 20210101
  Transmission Date: 20210419
  Serious: Yes (Death)
  Sender: FDA-Public Use
  Company Number: IN-ROCHE-2741958

PATIENT
  Age: 41 Year
  Sex: Male

DRUGS (1)
  1. CELLCEPT [Suspect]
     Active Substance: MYCOPHENOLATE MOFETIL\MYCOPHENOLATE MOFETIL HYDROCHLORIDE
     Indication: RENAL TRANSPLANT
     Dosage: 500 MG + 250 MG (1.5?0?1/DAY)
     Route: 048
     Dates: start: 20200127, end: 20201221

REACTIONS (2)
  - Product prescribing error [Unknown]
  - Death [Fatal]
